FAERS Safety Report 4478997-3 (Version None)
Quarter: 2004Q4

REPORT INFORMATION
  Report Type: 
  Country: None (occurrence: None)
  Receive Date: 20040923
  Receipt Date: 20040823
  Transmission Date: 20050328
  Serious: No
  Sender: FDA-Public Use
  Company Number: 208636

PATIENT
  Age: 60 Year
  Sex: Female

DRUGS (2)
  1. AVASTIN [Suspect]
     Indication: COLORECTAL CANCER METASTATIC
     Dosage: 288 MG, INTRAVENOUS
     Route: 042
     Dates: start: 20040804
  2. CHEMOTHERAPY (ANTINEOPLASTIC AGENT NOS) [Suspect]

REACTIONS (1)
  - DIARRHOEA [None]
